FAERS Safety Report 4435913-8 (Version None)
Quarter: 2004Q3

REPORT INFORMATION
  Report Type: 
  Country: None (occurrence: None)
  Receive Date: 20040726
  Receipt Date: 20040423
  Transmission Date: 20050211
  Serious: No
  Sender: FDA-Public Use
  Company Number: USA040360637

PATIENT
  Age: 81 Year
  Sex: Female
  Weight: 56 kg

DRUGS (4)
  1. FORTEO [Suspect]
     Indication: OSTEOPOROSIS
     Dosage: 20 UG/1 DAY
     Dates: start: 20031101
  2. TENORMIN [Concomitant]
  3. VASOTEC (ENLAPRIL MALEATE) [Concomitant]
  4. CLONIDINE HCL [Concomitant]

REACTIONS (4)
  - INJECTION SITE HAEMORRHAGE [None]
  - MUSCLE CRAMP [None]
  - OVERDOSE [None]
  - PAIN IN EXTREMITY [None]
